FAERS Safety Report 11213817 (Version 1)
Quarter: 2015Q2

REPORT INFORMATION
  Report Type: Spontaneous
  Country: BR (occurrence: BR)
  Receive Date: 20150623
  Receipt Date: 20150623
  Transmission Date: 20150821
  Serious: Yes (Hospitalization)
  Sender: FDA-Public Use
  Company Number: BR-ASTRAZENECA-2015SE59423

PATIENT
  Age: 809 Month
  Sex: Female

DRUGS (4)
  1. PURAN [Concomitant]
     Active Substance: LEVOTHYROXINE SODIUM
     Indication: THYROID NEOPLASM
     Route: 048
  2. VIVACOR [Suspect]
     Active Substance: BISOPROLOL FUMARATE
     Indication: BLOOD CHOLESTEROL INCREASED
     Dosage: AT NIGHT
     Route: 048
     Dates: start: 2011, end: 201412
  3. VIVACOR [Suspect]
     Active Substance: BISOPROLOL FUMARATE
     Indication: BLOOD CHOLESTEROL INCREASED
     Dosage: CRESTOR
     Route: 048
  4. PRESSAT [Concomitant]
     Active Substance: AMLODIPINE BESYLATE
     Indication: HYPERTENSION
     Route: 048

REACTIONS (2)
  - Arthropathy [Recovered/Resolved]
  - Fall [Recovered/Resolved]

NARRATIVE: CASE EVENT DATE: 201412
